FAERS Safety Report 22850150 (Version 2)
Quarter: 2024Q3

REPORT INFORMATION
  Report Type: Spontaneous
  Country: US (occurrence: None)
  Receive Date: 20230822
  Receipt Date: 20240823
  Transmission Date: 20241016
  Serious: No
  Sender: EMMAUS LIFE SCIENCES
  Company Number: US-Emmaus Medical, Inc.-EMM202306-000130

PATIENT
  Sex: Female
  Weight: 63.412 kg

DRUGS (3)
  1. ENDARI [Suspect]
     Active Substance: GLUTAMINE
     Indication: Sickle cell disease
     Dosage: 10 G
     Route: 048
     Dates: start: 20230427
  2. ENDARI [Suspect]
     Active Substance: GLUTAMINE
     Dosage: 10 G
     Route: 048
     Dates: start: 20230508
  3. HYDREA [Concomitant]
     Active Substance: HYDROXYUREA
     Indication: Product used for unknown indication
     Dosage: 500 MG
     Dates: start: 202110

REACTIONS (3)
  - Abdominal discomfort [Recovered/Resolved]
  - Product dose omission in error [Unknown]
  - Product dose omission issue [Unknown]
